FAERS Safety Report 23590869 (Version 1)
Quarter: 2024Q1

REPORT INFORMATION
  Report Type: Spontaneous
  Country: US (occurrence: US)
  Receive Date: 20240304
  Receipt Date: 20240304
  Transmission Date: 20240410
  Serious: Yes (Hospitalization)
  Sender: FDA-Public Use
  Company Number: US-MYLANLABS-2024M1018351

PATIENT
  Sex: Male
  Weight: 83.91 kg

DRUGS (1)
  1. OCTREOTIDE ACETATE [Suspect]
     Active Substance: OCTREOTIDE ACETATE
     Indication: Hypoglycaemia
     Dosage: ONLY ONCE
     Route: 058
     Dates: start: 20240205

REACTIONS (7)
  - Volvulus [Unknown]
  - Sepsis [Unknown]
  - Intestinal perforation [Unknown]
  - Pancreatitis [Unknown]
  - Nausea [Unknown]
  - Abdominal distension [Unknown]
  - Off label use [Unknown]
